FAERS Safety Report 4960542-7 (Version None)
Quarter: 2006Q1

REPORT INFORMATION
  Report Type: 
  Country: None (occurrence: None)
  Receive Date: 20060331
  Receipt Date: 20060331
  Transmission Date: 20060701
  Serious: Yes (Hospitalization)
  Sender: FDA-Public Use
  Company Number: None

PATIENT
  Age: 71 Year
  Sex: Female
  Weight: 96.3 kg

DRUGS (2)
  1. MYLOTARG [Suspect]
     Indication: ACUTE MYELOID LEUKAEMIA
     Dosage: 10 MG   TWICE   IV DRIP
     Route: 041
     Dates: start: 20050513
  2. MYLOTARG [Suspect]
     Indication: ACUTE MYELOID LEUKAEMIA
     Dosage: 10 MG   TWICE   IV DRIP
     Route: 041
     Dates: start: 20050520

REACTIONS (7)
  - ACUTE LEFT VENTRICULAR FAILURE [None]
  - ACUTE RIGHT VENTRICULAR FAILURE [None]
  - CARDIAC DISORDER [None]
  - CARDIAC TAMPONADE [None]
  - PERICARDIAL EFFUSION [None]
  - TACHYCARDIA [None]
  - VENOUS PRESSURE JUGULAR INCREASED [None]
